FAERS Safety Report 5160578-X (Version None)
Quarter: 2006Q4

REPORT INFORMATION
  Report Type: 
  Country: None (occurrence: None)
  Receive Date: 20061121
  Receipt Date: 20061107
  Transmission Date: 20070319
  Serious: Yes (Other)
  Sender: FDA-Public Use
  Company Number: 2006137262

PATIENT
  Age: 56 Year
  Sex: Male
  Weight: 82.5547 kg

DRUGS (8)
  1. LYRICA [Suspect]
     Indication: DIABETIC NEUROPATHY
     Dosage: 300 MG (100 MG, 3 IN 1 D)
     Dates: start: 20060201
  2. INSULIN [Concomitant]
  3. LANTUS [Concomitant]
  4. ZOCOR [Concomitant]
  5. METOPROLOL SUCCINATE [Concomitant]
  6. METFORMIN [Concomitant]
  7. GLYBURIDE [Concomitant]
  8. VICODIN [Concomitant]

REACTIONS (2)
  - DIZZINESS [None]
  - FLUSHING [None]
